FAERS Safety Report 5469473-X (Version None)
Quarter: 2007Q3

REPORT INFORMATION
  Report Type: 
  Country: None (occurrence: None)
  Receive Date: 20070925
  Receipt Date: 20070925
  Transmission Date: 20080115
  Serious: Yes (Life-Threatening)
  Sender: FDA-Public Use
  Company Number: None

PATIENT
  Age: 39 Year
  Weight: 90.7194 kg

DRUGS (1)
  1. LIPITOR [Suspect]
     Indication: BLOOD CHOLESTEROL INCREASED
     Dosage: 1 DAILY PO
     Route: 048

REACTIONS (5)
  - ASTHENIA [None]
  - DERMATOMYOSITIS [None]
  - MYALGIA [None]
  - PHOTOSENSITIVITY REACTION [None]
  - PULMONARY FIBROSIS [None]
